FAERS Safety Report 20652195 (Version 2)
Quarter: 2022Q2

REPORT INFORMATION
  Report Type: Spontaneous
  Country: MX (occurrence: MX)
  Receive Date: 20220330
  Receipt Date: 20220412
  Transmission Date: 20220721
  Serious: Yes (Other)
  Sender: FDA-Public Use
  Company Number: MX-SUN PHARMACEUTICAL INDUSTRIES LTD-2022R1-330631

PATIENT
  Sex: Female
  Weight: 2.35 kg

DRUGS (5)
  1. LABETALOL [Suspect]
     Active Substance: LABETALOL\LABETALOL HYDROCHLORIDE
     Indication: Pre-eclampsia
     Dosage: 1 BOLUS OF 5 MILLIGRAM
     Route: 064
  2. METOPROLOL [Suspect]
     Active Substance: METOPROLOL
     Indication: Pre-eclampsia
     Dosage: 100 MILLIGRAM, EVERY 12 HRS
     Route: 064
  3. NIFEDIPINE [Suspect]
     Active Substance: NIFEDIPINE
     Indication: Pre-eclampsia
     Dosage: 30 MILLIGRAM
     Route: 064
  4. NIFEDIPINE [Suspect]
     Active Substance: NIFEDIPINE
     Dosage: 60 MILLIGRAM, EVERY 12 HOURS
     Route: 064
  5. MAGNESIUM SULFATE [Suspect]
     Active Substance: MAGNESIUM SULFATE
     Indication: Pre-eclampsia
     Dosage: UNK
     Route: 064

REACTIONS (3)
  - Foetal exposure during pregnancy [Unknown]
  - Oligohydramnios [Recovered/Resolved]
  - Premature baby [Unknown]
